FAERS Safety Report 12864872 (Version 1)
Quarter: 2016Q4

REPORT INFORMATION
  Report Type: Report from Study
  Country: CO (occurrence: CO)
  Receive Date: 20161020
  Receipt Date: 20161020
  Transmission Date: 20170207
  Serious: Yes (Death, Hospitalization)
  Sender: FDA-Public Use
  Company Number: CO-ACTELION-A-CH2016-144052

PATIENT
  Age: 46 Year
  Sex: Male

DRUGS (1)
  1. TRACLEER [Suspect]
     Active Substance: BOSENTAN
     Indication: PULMONARY ARTERIAL HYPERTENSION
     Dosage: 125 MG, QD
     Route: 048
     Dates: start: 20160511, end: 20160706

REACTIONS (2)
  - Condition aggravated [Fatal]
  - Pulmonary arterial hypertension [Fatal]
